FAERS Safety Report 5364272-1 (Version None)
Quarter: 2007Q2

REPORT INFORMATION
  Report Type: 
  Country: None (occurrence: None)
  Receive Date: 20070620
  Receipt Date: 20070611
  Transmission Date: 20071010
  Serious: Yes (Hospitalization)
  Sender: FDA-Public Use
  Company Number: BE-GENENTECH-226887

PATIENT
  Sex: Male

DRUGS (15)
  1. RITUXIMAB [Suspect]
     Indication: RHEUMATOID ARTHRITIS
     Dosage: 1000 MG, DAYS 1+15
     Route: 042
     Dates: start: 20041108
  2. METHYLPREDNISOLONE [Suspect]
     Indication: RHEUMATOID ARTHRITIS
     Dosage: 100 MG, DAYS 1+15
     Route: 042
     Dates: start: 20041108
  3. PREDNISONE TAB [Suspect]
     Indication: RHEUMATOID ARTHRITIS
     Dosage: UNK, DAYS 2-14
     Route: 048
     Dates: start: 20041109
  4. METHOTREXATE [Concomitant]
     Indication: RHEUMATOID ARTHRITIS
     Dosage: 15 MG, UNK
     Route: 048
     Dates: start: 20020101
  5. FOLIC ACID [Concomitant]
     Indication: RHEUMATOID ARTHRITIS
     Dosage: 5 MG, UNK
     Route: 048
     Dates: start: 20040407
  6. PREDNISOLONE [Concomitant]
     Indication: RHEUMATOID ARTHRITIS
     Dosage: 5 MG, QD
     Route: 048
     Dates: start: 20040101
  7. DAFALGAN CODEINE [Concomitant]
     Indication: RHEUMATOID ARTHRITIS
     Dosage: 500 MG, PRN
     Route: 048
     Dates: start: 19930101
  8. IDOMETHINE [Concomitant]
     Indication: RHEUMATOID ARTHRITIS
     Dosage: 100 MG, QD
     Route: 054
     Dates: end: 20050705
  9. IDOMETHINE [Concomitant]
     Dosage: 100 MG, QD
     Route: 048
     Dates: start: 20051005
  10. VALTRAN [Concomitant]
     Indication: RHEUMATOID ARTHRITIS
     Dosage: 30 UNK, QD
     Route: 048
     Dates: start: 20050510, end: 20050524
  11. TRIAMCINOLONE ACETONIDE [Concomitant]
     Indication: RHEUMATOID ARTHRITIS
     Dosage: 40 MG, SINGLE
     Dates: start: 20050930, end: 20050930
  12. ACIDE ACETYLSALICYLIQUE [Concomitant]
     Indication: PROPHYLAXIS
     Dates: start: 19941201
  13. DUOVENT [Concomitant]
     Indication: CHRONIC OBSTRUCTIVE PULMONARY DISEASE
     Dates: start: 20041124
  14. LORAMET [Concomitant]
     Indication: INSOMNIA
     Dates: start: 20040404
  15. ACETYLCYSTEINE [Concomitant]
     Indication: CHRONIC OBSTRUCTIVE PULMONARY DISEASE
     Dates: start: 20050201, end: 20050429

REACTIONS (1)
  - GASTROINTESTINAL DISORDER [None]
